FAERS Safety Report 9315409 (Version 1)
Quarter: 2013Q2

REPORT INFORMATION
  Report Type: Report from Study
  Country: US (occurrence: US)
  Receive Date: 20130529
  Receipt Date: 20130529
  Transmission Date: 20140414
  Serious: Yes (Other)
  Sender: FDA-Public Use
  Company Number: US-ROCHE-1227888

PATIENT
  Age: 53 Year
  Sex: Male
  Weight: 93.07 kg

DRUGS (7)
  1. XOLAIR [Suspect]
     Indication: ASTHMA
     Route: 065
     Dates: start: 20130105, end: 20130105
  2. XOLAIR [Suspect]
     Route: 050
     Dates: start: 20130501, end: 20130501
  3. FLONASE [Concomitant]
  4. SINGULAIR [Concomitant]
     Indication: ASTHMA
  5. SYMBICORT [Concomitant]
     Indication: ASTHMA
  6. PROZAC [Concomitant]
     Route: 065
  7. BENADRYL [Concomitant]
     Route: 065

REACTIONS (4)
  - Rash [Not Recovered/Not Resolved]
  - Photosensitivity reaction [Not Recovered/Not Resolved]
  - Pruritus [Unknown]
  - Pharyngeal oedema [Unknown]
